FAERS Safety Report 5513212-0 (Version None)
Quarter: 2007Q4

REPORT INFORMATION
  Report Type: 
  Country: None (occurrence: None)
  Receive Date: 20071112
  Receipt Date: 20071030
  Transmission Date: 20080405
  Serious: Yes (Hospitalization)
  Sender: FDA-Public Use
  Company Number: FR-ASTRAZENECA-2007SE05994

PATIENT
  Age: 34722 Day
  Sex: Male

DRUGS (8)
  1. KENZEN 8 MG [Suspect]
     Indication: DRUG USE FOR UNKNOWN INDICATION
     Route: 048
  2. SPIRONOLACTONE [Suspect]
     Indication: ISCHAEMIC CARDIOMYOPATHY
     Route: 048
     Dates: end: 20071001
  3. FUROSEMIDE [Suspect]
     Indication: ISCHAEMIC CARDIOMYOPATHY
     Route: 048
     Dates: end: 20071001
  4. LAMALINE [Suspect]
     Indication: SCIATICA
     Route: 048
     Dates: start: 20071002, end: 20071005
  5. VOGALENE [Suspect]
     Indication: VOMITING
     Route: 030
     Dates: start: 20071005, end: 20071005
  6. HEMIGOXINE [Concomitant]
     Indication: ATRIAL FIBRILLATION
     Route: 048
  7. PLAVIX [Concomitant]
     Indication: PROPHYLAXIS
     Route: 048
  8. ALLOPURINOL [Concomitant]
     Indication: DRUG USE FOR UNKNOWN INDICATION
     Route: 048

REACTIONS (3)
  - FALL [None]
  - MALAISE [None]
  - ORTHOSTATIC HYPOTENSION [None]
